FAERS Safety Report 7530057-0 (Version None)
Quarter: 2011Q2

REPORT INFORMATION
  Report Type: 
  Country: None (occurrence: None)
  Receive Date: 20110527
  Receipt Date: 20110513
  Transmission Date: 20111010
  Serious: Yes (Hospitalization)
  Sender: FDA-Public Use
  Company Number: 2011SP022816

PATIENT
  Age: 60 Year
  Sex: Male

DRUGS (9)
  1. ASPIRIN [Suspect]
     Indication: CARDIAC DISORDER
  2. PREDNISONE [Suspect]
     Indication: TUBULOINTERSTITIAL NEPHRITIS
     Dosage: 1 MG/KG;
  3. DIAZEPAM [Concomitant]
  4. ST JOHNS WORT [Concomitant]
  5. METHYLPREDNISOLONE SODIUM SUCCINATE [Suspect]
     Indication: TUBULOINTERSTITIAL NEPHRITIS
     Dosage: 1 GM;  ;IV
     Route: 042
  6. OMEPRAZOLE [Concomitant]
  7. VENLAFAXINE [Concomitant]
  8. BUDESONIDE [Concomitant]
  9. ATORVASTATIN [Concomitant]

REACTIONS (11)
  - MELAENA [None]
  - BLOOD UREA INCREASED [None]
  - WHITE BLOOD CELL COUNT INCREASED [None]
  - GASTRITIS EROSIVE [None]
  - HAEMATOCRIT DECREASED [None]
  - THROMBOSIS [None]
  - GASTRIC ULCER [None]
  - SYNCOPE [None]
  - ORTHOSTATIC HYPOTENSION [None]
  - BLOOD CREATININE INCREASED [None]
  - PLATELET COUNT INCREASED [None]
